FAERS Safety Report 24766924 (Version 1)
Quarter: 2024Q4

REPORT INFORMATION
  Report Type: Spontaneous
  Country: US (occurrence: None)
  Receive Date: 20241223
  Receipt Date: 20241223
  Transmission Date: 20250115
  Serious: Yes (Disabling)
  Sender: Public
  Company Number: None

PATIENT
  Age: 71 Year
  Sex: Male
  Weight: 113.4 kg

DRUGS (9)
  1. VABYSMO [Suspect]
     Active Substance: FARICIMAB-SVOA
     Indication: Visual impairment
     Dates: start: 20240924, end: 20240924
  2. LOSARTAN [Concomitant]
     Active Substance: LOSARTAN
  3. LATANOPROST [Concomitant]
     Active Substance: LATANOPROST
  4. TIMOLOL MALEATE [Concomitant]
     Active Substance: TIMOLOL MALEATE
  5. BRIMONIDINE [Concomitant]
     Active Substance: BRIMONIDINE TARTRATE
  6. FLECAINIDE [Concomitant]
     Active Substance: FLECAINIDE
  7. METOPROLOL TARTRATE [Concomitant]
     Active Substance: METOPROLOL TARTRATE
  8. ELIQUIS [Concomitant]
     Active Substance: APIXABAN
  9. ATORVASTATIN [Concomitant]
     Active Substance: ATORVASTATIN

REACTIONS (3)
  - Visual impairment [None]
  - Visual impairment [None]
  - Impaired driving ability [None]

NARRATIVE: CASE EVENT DATE: 20240924
